FAERS Safety Report 4821424-4 (Version None)
Quarter: 2005Q4

REPORT INFORMATION
  Report Type: 
  Country: None (occurrence: None)
  Receive Date: 20051104
  Receipt Date: 20051104
  Transmission Date: 20060501
  Serious: No
  Sender: FDA-Public Use
  Company Number: None

PATIENT
  Age: 17 Year
  Sex: Female

DRUGS (2)
  1. MENACTRA [Suspect]
     Dosage: INJECTABLE
  2. MENOMUNE-A/C/Y/W-135 [Suspect]
     Dosage: INJECTABLE

REACTIONS (6)
  - ADVERSE DRUG REACTION [None]
  - INCORRECT ROUTE OF DRUG ADMINISTRATION [None]
  - INJECTION SITE ERYTHEMA [None]
  - INJECTION SITE PRURITUS [None]
  - INJECTION SITE SWELLING [None]
  - MEDICATION ERROR [None]
